FAERS Safety Report 11016170 (Version 2)
Quarter: 2015Q2

REPORT INFORMATION
  Report Type: Spontaneous
  Country: US (occurrence: US)
  Receive Date: 20150412
  Receipt Date: 20150525
  Transmission Date: 20150821
  Serious: No
  Sender: FDA-Public Use
  Company Number: US-JNJFOC-20110803990

PATIENT
  Age: 68 Year
  Sex: Female
  Weight: 69.85 kg

DRUGS (7)
  1. FOLIC ACID. [Concomitant]
     Active Substance: FOLIC ACID
  2. ALTACE [Concomitant]
     Active Substance: RAMIPRIL
     Indication: BLOOD PRESSURE
     Route: 048
  3. SIMVASTIN [Concomitant]
     Active Substance: SIMVASTATIN
  4. CYMBALTA [Concomitant]
     Active Substance: DULOXETINE HYDROCHLORIDE
     Indication: PAIN
  5. POTASSIUM [Concomitant]
     Active Substance: POTASSIUM
  6. CORGARD [Concomitant]
     Active Substance: NADOLOL
     Indication: BLOOD PRESSURE
     Route: 048
     Dates: start: 2007
  7. SIMPONI [Suspect]
     Active Substance: GOLIMUMAB
     Indication: RHEUMATOID ARTHRITIS
     Route: 058
     Dates: start: 2010

REACTIONS (2)
  - Drug dose omission [Not Recovered/Not Resolved]
  - Device malfunction [Unknown]

NARRATIVE: CASE EVENT DATE: 20110803
